FAERS Safety Report 6049526-8 (Version None)
Quarter: 2009Q1

REPORT INFORMATION
  Report Type: 
  Country: None (occurrence: None)
  Receive Date: 20090121
  Receipt Date: 20090101
  Transmission Date: 20090719
  Serious: Yes (Death, Other)
  Sender: FDA-Public Use
  Company Number: 09P-028-0497282-00

PATIENT
  Age: 1 Year
  Sex: Female

DRUGS (2)
  1. SYNAGIS [Suspect]
     Indication: IMMUNISATION
     Dosage: (72 MG, 1 IN 1 M) INTRAMUSCULAR
     Route: 030
     Dates: start: 20081219, end: 20081219
  2. LANSOPRAZOLE (LANSOZPRAZOLE) [Concomitant]

REACTIONS (2)
  - CARDIAC FAILURE [None]
  - RESPIRATORY ARREST [None]
